FAERS Safety Report 5131207-6 (Version None)
Quarter: 2006Q4

REPORT INFORMATION
  Report Type: 
  Country: None (occurrence: None)
  Receive Date: 20061017
  Receipt Date: 20061017
  Transmission Date: 20070319
  Serious: Yes (Death)
  Sender: FDA-Public Use
  Company Number: None

PATIENT

DRUGS (1)
  1. OPTIRAY 350 [Suspect]
     Indication: SCAN WITH CONTRAST
     Dosage: 100ML IV BOLUS
     Route: 040
     Dates: start: 20061011, end: 20061011

REACTIONS (8)
  - AGITATION [None]
  - BURNING SENSATION [None]
  - DYSPNOEA [None]
  - FEELING HOT [None]
  - INFUSION RELATED REACTION [None]
  - LOSS OF CONSCIOUSNESS [None]
  - PULSE ABSENT [None]
  - RESTLESSNESS [None]
